FAERS Safety Report 16992169 (Version 2)
Quarter: 2020Q1

REPORT INFORMATION
  Report Type: Report from Study
  Country: None (occurrence: US)
  Receive Date: 20191105
  Receipt Date: 20200219
  Transmission Date: 20200409
  Serious: Yes (Hospitalization, Other)
  Sender: FDA-Public Use
  Company Number: US-ABBVIE-19K-163-2987435-00

PATIENT
  Age: 55 Year
  Sex: Male

DRUGS (1)
  1. HUMIRA [Suspect]
     Active Substance: ADALIMUMAB
     Indication: CROHN^S DISEASE
     Route: 058
     Dates: start: 2017

REACTIONS (5)
  - White blood cell count increased [Recovering/Resolving]
  - Testicular swelling [Recovered/Resolved]
  - Arthralgia [Recovering/Resolving]
  - Asthenia [Recovering/Resolving]
  - Orchitis [Recovering/Resolving]

NARRATIVE: CASE EVENT DATE: 201812
